FAERS Safety Report 5972984-1 (Version None)
Quarter: 2008Q4

REPORT INFORMATION
  Report Type: 
  Country: None (occurrence: None)
  Receive Date: 20081201
  Receipt Date: 20081121
  Transmission Date: 20090506
  Serious: Yes (Hospitalization, Other)
  Sender: FDA-Public Use
  Company Number: PHHY2008JP28208

PATIENT
  Age: 87 Year
  Sex: Female

DRUGS (2)
  1. CYCLOSPORINE [Suspect]
     Indication: APLASIA PURE RED CELL
     Route: 065
  2. PREDNISOLONE [Suspect]
     Indication: APLASIA PURE RED CELL
     Route: 065

REACTIONS (9)
  - ANOREXIA [None]
  - BLOOD GLUCOSE INCREASED [None]
  - DIABETIC KETOACIDOSIS [None]
  - MALAISE [None]
  - PNEUMONIA [None]
  - POLYDIPSIA [None]
  - POLYURIA [None]
  - TYPE 1 DIABETES MELLITUS [None]
  - URINE KETONE BODY PRESENT [None]
